FAERS Safety Report 4300631-3 (Version None)
Quarter: 2004Q1

REPORT INFORMATION
  Report Type: 
  Country: None (occurrence: None)
  Receive Date: 20040218
  Receipt Date: 20040206
  Transmission Date: 20041129
  Serious: Yes (Other)
  Sender: FDA-Public Use
  Company Number: 2004198218DE

PATIENT
  Sex: Male

DRUGS (2)
  1. BEXTRA [Suspect]
     Dosage: ORAL
     Route: 048
  2. MARCUMAR [Concomitant]

REACTIONS (3)
  - DRUG INTERACTION [None]
  - PROTHROMBIN TIME SHORTENED [None]
  - THROMBOSIS [None]
